FAERS Safety Report 5776001-8 (Version None)
Quarter: 2008Q2

REPORT INFORMATION
  Report Type: 
  Country: None (occurrence: None)
  Receive Date: 20080613
  Receipt Date: 20080516
  Transmission Date: 20081010
  Serious: No
  Sender: FDA-Public Use
  Company Number: ADE# 08-071

PATIENT
  Age: 83 Year
  Sex: Male
  Weight: 77.1115 kg

DRUGS (1)
  1. DIGOXIN [Suspect]
     Indication: CARDIAC DISORDER
     Dosage: ONE TABLET DAILY; FOR YEARS

REACTIONS (4)
  - ANOREXIA [None]
  - DEPRESSION [None]
  - FATIGUE [None]
  - SUICIDAL IDEATION [None]
